FAERS Safety Report 15292093 (Version 3)
Quarter: 2018Q3

REPORT INFORMATION
  Report Type: Spontaneous
  Country: US (occurrence: US)
  Receive Date: 20180818
  Receipt Date: 20180908
  Transmission Date: 20181010
  Serious: No
  Sender: FDA-Public Use
  Company Number: US-JNJFOC-20180725433

PATIENT
  Age: 66 Year
  Sex: Female
  Weight: 69.4 kg

DRUGS (2)
  1. WOMENS ROGAINE UNSCENTED [Suspect]
     Active Substance: MINOXIDIL
     Route: 061
  2. WOMENS ROGAINE UNSCENTED [Suspect]
     Active Substance: MINOXIDIL
     Indication: ALOPECIA
     Dosage: 1/2 CAPFUL SOMETIMES MORE IF RAN OUT
     Route: 061
     Dates: start: 20180201, end: 20180401

REACTIONS (5)
  - Pruritus [Recovered/Resolved]
  - Overdose [Unknown]
  - Medication residue present [Unknown]
  - Product formulation issue [Unknown]
  - Skin exfoliation [Recovered/Resolved]

NARRATIVE: CASE EVENT DATE: 2018
